FAERS Safety Report 10023864 (Version 3)
Quarter: 2014Q1

REPORT INFORMATION
  Report Type: Spontaneous
  Country: US (occurrence: None)
  Receive Date: 20131211
  Receipt Date: 20140310
  Transmission Date: 20141002
  Serious: Yes (Death, Other)
  Sender: FDA-Public Use
  Company Number: US-BIOTEST-T 502/13

PATIENT
  Sex: Male

DRUGS (1)
  1. BIVIGAM [Suspect]
     Indication: PRODUCT USED FOR UNKNOWN INDICATION
     Route: 041
     Dates: end: 20130910

REACTIONS (2)
  - Bile duct cancer [None]
  - Metastasis [None]
